FAERS Safety Report 7769012-4 (Version None)
Quarter: 2011Q3

REPORT INFORMATION
  Report Type: 
  Country: None (occurrence: None)
  Receive Date: 20110922
  Receipt Date: 20101123
  Transmission Date: 20111222
  Serious: No
  Sender: FDA-Public Use
  Company Number: US-ASTRAZENECA-2010SE02052

PATIENT
  Age: 710 Month
  Sex: Female
  Weight: 108.9 kg

DRUGS (24)
  1. ENBREL [Concomitant]
  2. LOVAZA [Concomitant]
  3. SEROQUEL [Suspect]
     Indication: BIPOLAR DISORDER
     Route: 048
     Dates: start: 20080101
  4. SEROQUEL [Suspect]
     Route: 048
     Dates: start: 20100109, end: 20100113
  5. DICYCLOMINE [Concomitant]
  6. CYMBALTA [Concomitant]
  7. PENTASA [Concomitant]
  8. METOCLOPRAMIDE [Concomitant]
  9. PHENOBARBITAL TAB [Concomitant]
  10. FEMARA [Concomitant]
  11. ZYPREXA [Concomitant]
  12. SEROQUEL [Suspect]
     Route: 048
     Dates: start: 20091201, end: 20100108
  13. SEROQUEL [Suspect]
     Route: 048
  14. CLONAZEPAM [Concomitant]
  15. METHOTREXATE [Concomitant]
  16. SINGULAIR [Concomitant]
  17. LITHIUM CARBONATE [Concomitant]
  18. METOPROLOL SUCCINATE [Concomitant]
  19. PANTOPRAZOLE [Concomitant]
  20. SEROQUEL [Suspect]
     Route: 048
  21. SEROQUEL [Suspect]
     Route: 048
     Dates: start: 20090701
  22. SEROQUEL [Suspect]
     Route: 048
  23. FOLIC ACID [Concomitant]
  24. CYTOMEL [Concomitant]

REACTIONS (5)
  - WEIGHT INCREASED [None]
  - VITAMIN D DECREASED [None]
  - DEPRESSION [None]
  - SINUSITIS [None]
  - INTENTIONAL DRUG MISUSE [None]
